FAERS Safety Report 6583224-7 (Version None)
Quarter: 2010Q1

REPORT INFORMATION
  Report Type: 
  Country: None (occurrence: None)
  Receive Date: 20100216
  Receipt Date: 20100204
  Transmission Date: 20100710
  Serious: Yes (Hospitalization)
  Sender: FDA-Public Use
  Company Number: JP-ROCHE-675942

PATIENT
  Sex: Female

DRUGS (9)
  1. TOCILIZUMAB [Suspect]
     Indication: RHEUMATOID ARTHRITIS
     Route: 041
     Dates: start: 20091021, end: 20091021
  2. LOXONIN [Suspect]
     Indication: RHEUMATOID ARTHRITIS
     Dosage: DOSE FORM: PERORAL AGENT
     Route: 048
     Dates: start: 20090727, end: 20091105
  3. LOXONIN [Suspect]
     Route: 048
  4. RIMATIL [Concomitant]
     Route: 048
     Dates: start: 20090904
  5. PREDONINE [Concomitant]
     Route: 048
     Dates: start: 20090904, end: 20091105
  6. FAMOTIDINE [Concomitant]
     Dosage: DRUG REPORTED AS: FAMOTIDINE OD(FAMOTIDINE)
     Route: 048
     Dates: start: 20090904, end: 20091127
  7. MUCOSTA [Concomitant]
     Dosage: DOSE FORM: PERORAL AGENT
     Route: 048
     Dates: start: 20090727, end: 20091105
  8. FRANDOL [Concomitant]
     Route: 048
  9. EVISTA [Concomitant]
     Dosage: DRUG REPORTED AS: EVISTA TAB 60MG(RALOXIFENE HYDROCHLORIDE)
     Route: 048

REACTIONS (4)
  - GASTROINTESTINAL HAEMORRHAGE [None]
  - HEPATIC FUNCTION ABNORMAL [None]
  - PLEURISY [None]
  - PNEUMONIA [None]
